FAERS Safety Report 11627940 (Version 1)
Quarter: 2015Q4

REPORT INFORMATION
  Report Type: Spontaneous
  Country: US (occurrence: None)
  Receive Date: 20151013
  Receipt Date: 20151013
  Transmission Date: 20160304
  Serious: Yes (Hospitalization)
  Sender: FDA-Public Use
  Company Number: None

PATIENT
  Age: 41 Year
  Sex: Male
  Weight: 152 kg

DRUGS (13)
  1. CETIRIZINE (ZYRTEC) [Concomitant]
  2. ACCU-CHEK FASTCLIX LANCETS [Concomitant]
  3. INVOKANA [Suspect]
     Active Substance: CANAGLIFLOZIN
     Indication: DIABETES MELLITUS
     Route: 048
  4. VICTOZA [Suspect]
     Active Substance: LIRAGLUTIDE
     Indication: DIABETES MELLITUS
     Dosage: 1.8 MG QD SUBCUTANEOUS?MANY MONTHS
     Route: 058
  5. HYDROCODONE/ACETAMINOPHEN (NORCO) [Concomitant]
  6. GLUCOSE BLOOD TEST STRIP [Concomitant]
  7. ACCU-CHEK SMARTVIEW STRIP [Concomitant]
  8. INSULIN GLARGINE (LANTUS SOLOSTAR) [Concomitant]
  9. INSULIN PEN NEEDLE (BD PEN NEEDLE NANO U/F) [Concomitant]
  10. LISINOPRIL (PRINIVIL OR ZESTRIL) [Concomitant]
  11. OMEPRAZOLE (PRILOSEC) [Concomitant]
  12. GLYBURIDE/METFORMIN (GLUCOVANCE) [Concomitant]
  13. METRONIDAZOLE (FLAGYL) [Concomitant]

REACTIONS (1)
  - Pancreatitis necrotising [None]

NARRATIVE: CASE EVENT DATE: 20151004
